FAERS Safety Report 9847021 (Version 2)
Quarter: 2014Q3

REPORT INFORMATION
  Report Type: Spontaneous
  Country: US (occurrence: US)
  Receive Date: 20140127
  Receipt Date: 20140826
  Transmission Date: 20150326
  Serious: Yes (Hospitalization)
  Sender: FDA-Public Use
  Company Number: US-009507513-1401USA011461

PATIENT
  Sex: Female

DRUGS (1)
  1. NUVARING [Suspect]
     Active Substance: ETHINYL ESTRADIOL\ETONOGESTREL
     Dosage: UNK
     Route: 067
     Dates: start: 201202, end: 201204

REACTIONS (4)
  - Arterial thrombosis [Recovering/Resolving]
  - Chest pain [Unknown]
  - Vasospasm [Unknown]
  - Vertigo [Unknown]

NARRATIVE: CASE EVENT DATE: 2012
